FAERS Safety Report 13725493 (Version 1)
Quarter: 2017Q3

REPORT INFORMATION
  Report Type: Spontaneous
  Country: US (occurrence: US)
  Receive Date: 20170706
  Receipt Date: 20170706
  Transmission Date: 20171127
  Serious: Yes (Other)
  Sender: FDA-Public Use
  Company Number: None

PATIENT
  Age: 62 Year
  Sex: Male
  Weight: 83.25 kg

DRUGS (1)
  1. GAMMAPLEX [Suspect]
     Active Substance: HUMAN IMMUNOGLOBULIN G
     Indication: POLYNEUROPATHY
     Dosage: 180 GM QMONTH (60GM/D X3D) INTRAVENOUS DRIP?
     Route: 041
     Dates: start: 20170606, end: 20170608

REACTIONS (1)
  - Thrombosis [None]

NARRATIVE: CASE EVENT DATE: 20170613
